FAERS Safety Report 12812800 (Version 2)
Quarter: 2016Q4

REPORT INFORMATION
  Report Type: Other
  Country: FR (occurrence: FR)
  Receive Date: 20161005
  Receipt Date: 20161013
  Transmission Date: 20170207
  Serious: Yes (Hospitalization)
  Sender: FDA-Public Use
  Company Number: FR-ASTELLAS-2016US039053

PATIENT
  Age: 84 Year
  Sex: Male

DRUGS (1)
  1. XTANDI [Suspect]
     Active Substance: ENZALUTAMIDE
     Indication: PROSTATE CANCER
     Route: 048
     Dates: start: 201505

REACTIONS (7)
  - Dyspnoea [Unknown]
  - Pain in extremity [Unknown]
  - Fall [Unknown]
  - Palpitations [Unknown]
  - Dysphonia [Unknown]
  - Deep vein thrombosis [Unknown]
  - Joint injury [Unknown]

NARRATIVE: CASE EVENT DATE: 20150905
